FAERS Safety Report 8125383-0 (Version None)
Quarter: 2012Q1

REPORT INFORMATION
  Report Type: 
  Country: None (occurrence: None)
  Receive Date: 20120209
  Receipt Date: 20120207
  Transmission Date: 20120608
  Serious: Yes (Other)
  Sender: FDA-Public Use
  Company Number: DE-GLAXOSMITHKLINE-D0074408A

PATIENT
  Age: 42 Year
  Sex: Female

DRUGS (4)
  1. VALPROATE SODIUM [Concomitant]
     Indication: EPILEPSY
     Route: 048
  2. KEPPRA [Concomitant]
     Indication: EPILEPSY
     Route: 065
  3. TROBALT [Suspect]
     Indication: EPILEPSY
     Route: 048
  4. ZEBINIX [Concomitant]
     Indication: EPILEPSY
     Route: 048

REACTIONS (2)
  - DEPRESSED MOOD [None]
  - URINARY RETENTION [None]
